FAERS Safety Report 9081600 (Version 1)
Quarter: 2013Q1

REPORT INFORMATION
  Report Type: Report from Study
  Country: US (occurrence: US)
  Receive Date: 20130130
  Receipt Date: 20130130
  Transmission Date: 20140127
  Serious: No
  Sender: FDA-Public Use
  Company Number: US-ABBOTT-12P-163-0981667-00

PATIENT
  Age: 30 Year
  Sex: Female

DRUGS (6)
  1. HUMIRA [Suspect]
     Indication: CROHN^S DISEASE
     Dosage: LOADING DOSE ON 06 SEP 2012
     Dates: start: 20120906
  2. LIPITOR [Concomitant]
     Indication: BLOOD CHOLESTEROL
  3. BIRTH CONTROL PILLS [Concomitant]
     Indication: PRODUCT USED FOR UNKNOWN INDICATION
  4. LIALDA [Concomitant]
     Indication: CROHN^S DISEASE
  5. ENTOCORT [Concomitant]
     Indication: CROHN^S DISEASE
  6. LIBRAX [Concomitant]
     Indication: ABDOMINAL PAIN

REACTIONS (3)
  - Increased tendency to bruise [Recovering/Resolving]
  - Injection site haemorrhage [Not Recovered/Not Resolved]
  - Bunion [Unknown]
